FAERS Safety Report 24379720 (Version 1)
Quarter: 2024Q3

REPORT INFORMATION
  Report Type: Spontaneous
  Country: US (occurrence: US)
  Receive Date: 20240930
  Receipt Date: 20240930
  Transmission Date: 20241016
  Serious: No
  Sender: GLENMARK
  Company Number: US-GLENMARK PHARMACEUTICALS-2024GMK090357

PATIENT

DRUGS (1)
  1. NITROGLYCERIN [Suspect]
     Active Substance: NITROGLYCERIN
     Indication: Chest pain
     Dosage: UNK
     Route: 060
     Dates: start: 20240416

REACTIONS (4)
  - Wrong technique in device usage process [Unknown]
  - Treatment delayed [Unknown]
  - Suspected product quality issue [Unknown]
  - Product solubility abnormal [Unknown]
